FAERS Safety Report 9052266 (Version 2)
Quarter: 2014Q2

REPORT INFORMATION
  Report Type: Spontaneous
  Country: CN (occurrence: CN)
  Receive Date: 20130206
  Receipt Date: 20140512
  Transmission Date: 20141212
  Serious: Yes (Death, Other)
  Sender: FDA-Public Use
  Company Number: PHHY2013CN007144

PATIENT
  Age: 1 Year
  Sex: Male

DRUGS (3)
  1. TRILEPTAL [Suspect]
     Indication: EPILEPSY
     Dosage: 1 DF, QD
     Dates: start: 20120101
  2. DEPAKINE [Concomitant]
     Dosage: 1 UT, QD
     Dates: start: 20130101, end: 20130114
  3. KEPPRA [Concomitant]
     Dosage: UNK
     Dates: start: 20130109, end: 20130116

REACTIONS (1)
  - Systemic lupus erythematosus [Fatal]
